FAERS Safety Report 5272130-6 (Version None)
Quarter: 2007Q1

REPORT INFORMATION
  Report Type: 
  Country: None (occurrence: None)
  Receive Date: 20070320
  Receipt Date: 20070320
  Transmission Date: 20070707
  Serious: Yes (Other)
  Sender: FDA-Public Use
  Company Number: None

PATIENT
  Sex: Male

DRUGS (11)
  1. REVLIMID [Suspect]
     Indication: LYMPHOPLASMACYTOID LYMPHOMA/IMMUNOCYTOMA
     Dosage: 10MG DAILY 21D/28D PO
     Route: 048
  2. ENDOCET [Concomitant]
  3. OXYCODONE HCL [Concomitant]
  4. TEMAZEPAM [Concomitant]
  5. ACYCLOVIR [Concomitant]
  6. SEPTRA [Concomitant]
  7. NORTRIPTYLINE HCL [Concomitant]
  8. ERYTHROMYCIN OPHTHALMIC OINT [Concomitant]
  9. OMEPRAZOLE [Concomitant]
  10. LACTINEX [Concomitant]
  11. LACTOBACILLUS [Concomitant]

REACTIONS (1)
  - HERPES ZOSTER DISSEMINATED [None]
